FAERS Safety Report 7648256-6 (Version None)
Quarter: 2011Q3

REPORT INFORMATION
  Report Type: 
  Country: None (occurrence: None)
  Receive Date: 20110801
  Receipt Date: 20110721
  Transmission Date: 20111222
  Serious: Yes (Hospitalization)
  Sender: FDA-Public Use
  Company Number: US-ACTELION-A-NJ2010-34748

PATIENT

DRUGS (2)
  1. TRACLEER [Suspect]
     Indication: PULMONARY ARTERIAL HYPERTENSION
     Dosage: UNK
     Route: 048
     Dates: start: 20090709
  2. CALCIUM CHANNEL BLOCKERS [Concomitant]

REACTIONS (10)
  - INSOMNIA [None]
  - SPEECH DISORDER [None]
  - NAUSEA [None]
  - OEDEMA [None]
  - KNEE OPERATION [None]
  - THINKING ABNORMAL [None]
  - DIZZINESS [None]
  - PRURITUS [None]
  - ABDOMINAL DISCOMFORT [None]
  - HEADACHE [None]
